FAERS Safety Report 15734617 (Version 1)
Quarter: 2018Q4

REPORT INFORMATION
  Report Type: Spontaneous
  Country: HR (occurrence: HR)
  Receive Date: 20181218
  Receipt Date: 20181218
  Transmission Date: 20190205
  Serious: Yes (Life-Threatening, Hospitalization)
  Sender: FDA-Public Use
  Company Number: HR-ELI_LILLY_AND_COMPANY-HR201812007354

PATIENT
  Age: 51 Year
  Sex: Male

DRUGS (11)
  1. OXALIPLATIN KABI [Concomitant]
     Active Substance: OXALIPLATIN
     Indication: MALIGNANT NEOPLASM OF UNKNOWN PRIMARY SITE
     Dosage: 160 MG, DAILY
     Route: 042
     Dates: start: 20180713, end: 20180713
  2. PANTECTA [Concomitant]
     Active Substance: PANTOPRAZOLE SODIUM
     Indication: PRODUCT USED FOR UNKNOWN INDICATION
     Dosage: 40 MG, DAILY
     Route: 048
  3. METOCLOPRAMIDE HYDROCHLORIDE. [Concomitant]
     Active Substance: METOCLOPRAMIDE HYDROCHLORIDE
     Indication: PRODUCT USED FOR UNKNOWN INDICATION
     Dosage: UNK
     Route: 048
  4. ERBITUX [Suspect]
     Active Substance: CETUXIMAB
     Indication: MALIGNANT NEOPLASM OF UNKNOWN PRIMARY SITE
     Dosage: 970 MG, DAILY
     Route: 042
     Dates: start: 20180713, end: 20180713
  5. MARTEFARIN [Concomitant]
     Active Substance: WARFARIN
     Indication: PRODUCT USED FOR UNKNOWN INDICATION
     Dosage: UNK
     Route: 048
  6. FLUOROURACIL PLIVA [Concomitant]
     Active Substance: FLUOROURACIL
     Indication: MALIGNANT NEOPLASM OF UNKNOWN PRIMARY SITE
     Dosage: 4600 MG, DAILY
     Route: 041
     Dates: start: 20180713, end: 20180713
  7. FLUOROURACIL PLIVA [Concomitant]
     Active Substance: FLUOROURACIL
     Dosage: 770 MG, DAILY
     Route: 040
     Dates: start: 20180713, end: 20180713
  8. CONCOR COR [Concomitant]
     Active Substance: BISOPROLOL FUMARATE
     Indication: PRODUCT USED FOR UNKNOWN INDICATION
     Dosage: 1.25 MG, DAILY
     Route: 048
  9. ANDOL PRO [Concomitant]
     Indication: PRODUCT USED FOR UNKNOWN INDICATION
     Dosage: 100 MG, DAILY
     Route: 048
  10. SORTIS [Concomitant]
     Active Substance: ATORVASTATIN
     Indication: PRODUCT USED FOR UNKNOWN INDICATION
     Dosage: 80 MG, DAILY
     Route: 048
  11. KALCIJEV FOLINAT PLIVA [Concomitant]
     Active Substance: LEUCOVORIN CALCIUM
     Indication: MALIGNANT NEOPLASM OF UNKNOWN PRIMARY SITE
     Dosage: 770 MG, DAILY
     Route: 042
     Dates: start: 20180713, end: 20180713

REACTIONS (2)
  - Anaphylactic shock [Recovered/Resolved with Sequelae]
  - Angina pectoris [Recovered/Resolved with Sequelae]

NARRATIVE: CASE EVENT DATE: 20180713
